FAERS Safety Report 26215160 (Version 1)
Quarter: 2025Q4

REPORT INFORMATION
  Report Type: Spontaneous
  Country: US (occurrence: US)
  Receive Date: 20251230
  Receipt Date: 20251230
  Transmission Date: 20260117
  Serious: Yes (Hospitalization)
  Sender: Pyros Pharmaceuticals
  Company Number: US-PYROS PHARMACEUTICALS, INC-20251001327

PATIENT
  Sex: Male

DRUGS (2)
  1. VIGAFYDE [Suspect]
     Active Substance: VIGABATRIN
     Indication: Infantile spasms
     Dosage: 600 MG, BID (6 ML)
     Route: 048
     Dates: start: 20251010
  2. VIGAFYDE [Suspect]
     Active Substance: VIGABATRIN
     Dosage: 600 MG, BID (6 ML)
     Route: 048
     Dates: start: 20251010, end: 2025

REACTIONS (5)
  - Viral infection [Unknown]
  - Vomiting [Not Recovered/Not Resolved]
  - Nausea [Not Recovered/Not Resolved]
  - Nasopharyngitis [Unknown]
  - Somnolence [Not Recovered/Not Resolved]

NARRATIVE: CASE EVENT DATE: 20250101
